FAERS Safety Report 26197122 (Version 1)
Quarter: 2025Q4

REPORT INFORMATION
  Report Type: Spontaneous
  Country: EU (occurrence: EU)
  Receive Date: 20251224
  Receipt Date: 20251224
  Transmission Date: 20260117
  Serious: Yes (Other)
  Sender: AMGEN
  Company Number: EU-AMGEN-DEUSP2025250954

PATIENT
  Age: 67 Year
  Sex: Male

DRUGS (4)
  1. TARLATAMAB [Suspect]
     Active Substance: TARLATAMAB
     Indication: Small cell lung cancer metastatic
     Dosage: UNK
     Route: 065
     Dates: start: 202501
  2. TARLATAMAB [Suspect]
     Active Substance: TARLATAMAB
     Dosage: UNK, RESTART
     Route: 065
     Dates: start: 202503
  3. TARLATAMAB [Suspect]
     Active Substance: TARLATAMAB
     Dosage: UNK, RESTART
     Route: 065
     Dates: start: 202506
  4. FILGRASTIM [Suspect]
     Active Substance: FILGRASTIM
     Indication: Neutropenia
     Dosage: UNK
     Route: 065
     Dates: start: 202503

REACTIONS (6)
  - Malignant neoplasm oligoprogression [Unknown]
  - Neutropenia [Unknown]
  - Taste disorder [Unknown]
  - Weight decreased [Unknown]
  - Therapy partial responder [Unknown]
  - Fatigue [Unknown]

NARRATIVE: CASE EVENT DATE: 20250201
